FAERS Safety Report 15278124 (Version 1)
Quarter: 2018Q3

REPORT INFORMATION
  Report Type: Spontaneous
  Country: AM (occurrence: AM)
  Receive Date: 20180814
  Receipt Date: 20180814
  Transmission Date: 20181010
  Serious: Yes (Hospitalization, Other)
  Sender: FDA-Public Use
  Company Number: AM-PFIZER INC-2018325284

PATIENT
  Age: 52 Year
  Sex: Male

DRUGS (16)
  1. CLOFAZIMINE [Suspect]
     Active Substance: CLOFAZIMINE
     Indication: PULMONARY TUBERCULOSIS
     Dosage: 200/100 (UNIT UNKNOWN), 1X/DAY
     Dates: start: 20171018
  2. LEVOFLOXACIN. [Suspect]
     Active Substance: LEVOFLOXACIN
     Indication: PULMONARY TUBERCULOSIS
     Dosage: 1000 UNK, 1X/DAY
     Dates: start: 20180116
  3. PYRAZINAMIDE. [Suspect]
     Active Substance: PYRAZINAMIDE
     Indication: PULMONARY TUBERCULOSIS
     Dosage: 1600 UNK, 1X/DAY
     Dates: start: 20171018, end: 20171226
  4. DEPAKIN [Concomitant]
     Active Substance: VALPROATE SODIUM
     Dosage: 300 MG, UNK
  5. PROTIONAMIDE [Suspect]
     Active Substance: PROTIONAMIDE
     Indication: PULMONARY TUBERCULOSIS
     Dosage: 750 UNK, 1X/DAY
     Dates: start: 20171018
  6. FTC [Concomitant]
     Active Substance: EMTRICITABINE
     Dosage: UNK
     Dates: start: 20171123
  7. BEDAQUILINE [Suspect]
     Active Substance: BEDAQUILINE
     Indication: PULMONARY TUBERCULOSIS
     Dosage: 400/200 (UNIT UNKNOWN), 1X/DAY
     Dates: start: 20171226
  8. DELAMANID [Suspect]
     Active Substance: DELAMANID
     Indication: PULMONARY TUBERCULOSIS
     Dosage: 200 UNK, 1X/DAY
     Dates: start: 20171018
  9. LETIRAM [Concomitant]
     Dosage: 1000 MG, UNK
  10. LINEZOLID. [Suspect]
     Active Substance: LINEZOLID
     Indication: PULMONARY TUBERCULOSIS
     Dosage: 600 UNK, 1X/DAY
     Dates: start: 20171018
  11. AMINOSALICYLIC ACID [Suspect]
     Active Substance: AMINOSALICYLIC ACID
     Indication: PULMONARY TUBERCULOSIS
     Dosage: 8000 UNK, 1X/DAY
     Dates: start: 20171018, end: 20171117
  12. PYRIDOXINE [Concomitant]
     Active Substance: PYRIDOXINE
     Dosage: UNK
  13. COTRIMOXAZOLE [Concomitant]
     Active Substance: SULFAMETHOXAZOLE\TRIMETHOPRIM
     Dosage: UNK
  14. SALBUTAMOL [Concomitant]
     Active Substance: ALBUTEROL
     Dosage: UNK
  15. TENOFOVIR DISOPROXIL FUMARATE. [Concomitant]
     Active Substance: TENOFOVIR DISOPROXIL FUMARATE
     Dosage: UNK
     Dates: start: 20171123
  16. LOPINAVIR/RITONAVIR [Concomitant]
     Dosage: UNK
     Dates: start: 20171123

REACTIONS (9)
  - Dyspnoea [Recovered/Resolved]
  - Nausea [Unknown]
  - Seizure [Unknown]
  - Hepatomegaly [Unknown]
  - Aspartate aminotransferase increased [Unknown]
  - Pneumonia [Recovering/Resolving]
  - Chest pain [Recovered/Resolved]
  - Body temperature increased [Recovered/Resolved]
  - Alanine aminotransferase increased [Unknown]

NARRATIVE: CASE EVENT DATE: 2017
